FAERS Safety Report 14582303 (Version 5)
Quarter: 2020Q2

REPORT INFORMATION
  Report Type: Report from Study
  Country: DE (occurrence: DE)
  Receive Date: 20180228
  Receipt Date: 20200601
  Transmission Date: 20200713
  Serious: Yes (Hospitalization)
  Sender: FDA-Public Use
  Company Number: DE-SA-2017SA130467

PATIENT

DRUGS (9)
  1. ALEMTUZUMAB [Suspect]
     Active Substance: ALEMTUZUMAB
     Indication: MULTIPLE SCLEROSIS
     Dosage: 12 MG,UNK
     Route: 041
     Dates: start: 20170703, end: 20170707
  2. PANTOZOL [Concomitant]
     Active Substance: PANTOPRAZOLE SODIUM
     Dosage: 40 MG
     Route: 048
  3. BAYOTENSIN [Concomitant]
     Active Substance: NITRENDIPINE
     Indication: HYPERTENSIVE CRISIS
     Dosage: 5 MG, PRN
     Route: 048
     Dates: start: 201707
  4. METOPROLOL. [Concomitant]
     Active Substance: METOPROLOL
     Indication: HYPERTENSION
     Dosage: 47.5 MG
     Route: 048
  5. RAMIPRIL. [Concomitant]
     Active Substance: RAMIPRIL
     Dosage: 10 MG
     Route: 048
  6. ACICLOVIR [Concomitant]
     Active Substance: ACYCLOVIR
     Indication: PROPHYLAXIS
     Dosage: 200 MG
     Route: 048
     Dates: start: 20170702, end: 20170802
  7. BAYOTENSIN [Concomitant]
     Active Substance: NITRENDIPINE
     Dosage: 5 UNK
     Route: 048
     Dates: start: 20170707, end: 20170707
  8. NOVORAPID [Concomitant]
     Active Substance: INSULIN ASPART
     Indication: DIABETES MELLITUS
     Dosage: UNK, PRN
     Route: 030
  9. LEVOTHYROXINE SODIUM. [Concomitant]
     Active Substance: LEVOTHYROXINE SODIUM
     Dosage: 150 UG
     Route: 048

REACTIONS (4)
  - Listeriosis [Recovered/Resolved]
  - Hypertensive crisis [Recovered/Resolved]
  - Listeriosis [Recovered/Resolved]
  - Pyrexia [Recovering/Resolving]

NARRATIVE: CASE EVENT DATE: 20170707
